FAERS Safety Report 11683292 (Version 1)
Quarter: 2015Q4

REPORT INFORMATION
  Report Type: Spontaneous
  Country: ID (occurrence: ID)
  Receive Date: 20151029
  Receipt Date: 20151029
  Transmission Date: 20160304
  Serious: Yes (Death, Hospitalization)
  Sender: FDA-Public Use
  Company Number: ID-BAYER-2015-448649

PATIENT
  Sex: Female

DRUGS (2)
  1. ADALAT [Suspect]
     Active Substance: NIFEDIPINE
     Indication: PRE-ECLAMPSIA
  2. ADALAT [Suspect]
     Active Substance: NIFEDIPINE
     Indication: HYPERTENSION
     Route: 048

REACTIONS (2)
  - Death [Fatal]
  - Exposure during pregnancy [None]
